FAERS Safety Report 14820877 (Version 1)
Quarter: 2018Q2

REPORT INFORMATION
  Report Type: Spontaneous
  Country: US (occurrence: US)
  Receive Date: 20180403
  Receipt Date: 20180403
  Transmission Date: 20180711
  Serious: Yes (Life-Threatening)
  Sender: FDA-Public Use
  Company Number: None

PATIENT
  Age: 72 Year
  Sex: Male
  Weight: 78.6 kg

DRUGS (2)
  1. BENZOCAINE SOLUTION [Suspect]
     Active Substance: BENZOCAINE
     Indication: ORAL PAIN
     Route: 061
     Dates: start: 20180401, end: 20180402
  2. BENZOCAINE SOLUTION [Suspect]
     Active Substance: BENZOCAINE
     Indication: OROPHARYNGEAL PAIN
     Route: 061
     Dates: start: 20180401, end: 20180402

REACTIONS (2)
  - Oxygen saturation decreased [None]
  - Methaemoglobinaemia [None]

NARRATIVE: CASE EVENT DATE: 20180402
